FAERS Safety Report 18717550 (Version 2)
Quarter: 2021Q1

REPORT INFORMATION
  Report Type: Report from Study
  Country: CO (occurrence: CO)
  Receive Date: 20210108
  Receipt Date: 20210128
  Transmission Date: 20210419
  Serious: Yes (Death, Other)
  Sender: FDA-Public Use
  Company Number: CO-NOVOPROD-778494

PATIENT
  Age: 75 Year
  Sex: Male

DRUGS (3)
  1. INSULIN GLULISINE [Concomitant]
     Active Substance: INSULIN GLULISINE
     Dosage: UNK
     Route: 065
  2. INSULIN GLARGINE [Concomitant]
     Active Substance: INSULIN GLARGINE
     Dosage: UNK
     Route: 065
  3. OZEMPIC [Suspect]
     Active Substance: SEMAGLUTIDE
     Indication: DIABETES MELLITUS
     Dosage: 0.25 MG, QW
     Route: 058
     Dates: start: 20200904, end: 20201226

REACTIONS (6)
  - Malaise [Unknown]
  - Decreased appetite [Unknown]
  - Paralysis [Unknown]
  - Asthenia [Unknown]
  - Dizziness [Unknown]
  - Metabolic disorder [Fatal]

NARRATIVE: CASE EVENT DATE: 202009
